FAERS Safety Report 19221475 (Version 1)
Quarter: 2021Q2

REPORT INFORMATION
  Report Type: Spontaneous
  Country: US (occurrence: US)
  Receive Date: 20210505
  Receipt Date: 20210505
  Transmission Date: 20210717
  Serious: Yes (Hospitalization)
  Sender: FDA-Public Use
  Company Number: None

PATIENT
  Age: 67 Year
  Sex: Male
  Weight: 144 kg

DRUGS (2)
  1. ETESEVIMAB. [Suspect]
     Active Substance: ETESEVIMAB
     Indication: ACUTE RESPIRATORY FAILURE
     Dosage: ?          OTHER FREQUENCY:ONCE;?
     Route: 042
     Dates: start: 20210421, end: 20210421
  2. BAMLANIVIMAB. [Suspect]
     Active Substance: BAMLANIVIMAB
     Indication: ACUTE RESPIRATORY FAILURE
     Dosage: ?          OTHER FREQUENCY:ONCE;?
     Route: 042
     Dates: start: 20210421, end: 20210421

REACTIONS (16)
  - Decreased appetite [None]
  - Hyperhidrosis [None]
  - Dry throat [None]
  - Diarrhoea [None]
  - Hypokalaemia [None]
  - Headache [None]
  - Electrolyte imbalance [None]
  - Oropharyngeal pain [None]
  - Dyspnoea exertional [None]
  - Cough [None]
  - Dysuria [None]
  - Renal failure [None]
  - Pain [None]
  - Pyrexia [None]
  - Nausea [None]
  - Atrial fibrillation [None]

NARRATIVE: CASE EVENT DATE: 20210427
